FAERS Safety Report 18737406 (Version 2)
Quarter: 2021Q1

REPORT INFORMATION
  Report Type: Spontaneous
  Country: US (occurrence: US)
  Receive Date: 20210113
  Receipt Date: 20210223
  Transmission Date: 20210419
  Serious: Yes (Hospitalization)
  Sender: FDA-Public Use
  Company Number: US-TEVA-2021-US-1867435

PATIENT
  Age: 50 Year
  Sex: Female

DRUGS (1)
  1. LOPERAMIDE [Suspect]
     Active Substance: LOPERAMIDE
     Indication: DRUG USE DISORDER
     Route: 065

REACTIONS (7)
  - Torsade de pointes [Unknown]
  - Unresponsive to stimuli [Recovered/Resolved]
  - Syncope [Unknown]
  - Intentional product misuse [Unknown]
  - Ventricular tachycardia [Unknown]
  - Electrocardiogram QT prolonged [Recovered/Resolved]
  - Hypomagnesaemia [Unknown]
